FAERS Safety Report 21794337 (Version 1)
Quarter: 2022Q4

REPORT INFORMATION
  Report Type: Spontaneous
  Country: US (occurrence: US)
  Receive Date: 20221229
  Receipt Date: 20221229
  Transmission Date: 20230112
  Serious: No
  Sender: FDA-Public Use
  Company Number: US-PFIZER INC-202201393629

PATIENT
  Age: 42 Year
  Sex: Female

DRUGS (9)
  1. PAXLOVID [Suspect]
     Active Substance: NIRMATRELVIR\RITONAVIR
     Indication: COVID-19 treatment
     Dosage: UNK
     Dates: start: 20221215, end: 20221220
  2. LAMICTAL [Concomitant]
     Active Substance: LAMOTRIGINE
     Dosage: 200 MG, 3X/DAY
  3. MODAFINIL [Concomitant]
     Active Substance: MODAFINIL
     Dosage: 200 MG
  4. XANAX [Concomitant]
     Active Substance: ALPRAZOLAM
     Dosage: 1 MG, 4X/DAY
  5. SAPHRIS [Concomitant]
     Active Substance: ASENAPINE MALEATE
     Dosage: 5 MG, 1X/DAY
  6. ATORVASTATIN [Concomitant]
     Active Substance: ATORVASTATIN
     Dosage: 20 MG
  7. AMLODIPINE [Concomitant]
     Active Substance: AMLODIPINE BESYLATE
     Dosage: 5 MG
  8. IRON [Concomitant]
     Active Substance: IRON
     Dosage: 65 MG, 3 TIMES A WEEK
  9. VITAMIN C [Concomitant]
     Active Substance: ASCORBIC ACID
     Dosage: 500 MG, 3X A WEEK

REACTIONS (10)
  - Dysgeusia [Recovering/Resolving]
  - Salivary hypersecretion [Recovering/Resolving]
  - Diarrhoea [Recovering/Resolving]
  - Abdominal pain upper [Recovering/Resolving]
  - Myalgia [Recovering/Resolving]
  - Anosmia [Recovering/Resolving]
  - Ageusia [Recovering/Resolving]
  - Fatigue [Recovering/Resolving]
  - Dizziness postural [Recovering/Resolving]
  - Nasal congestion [Recovering/Resolving]

NARRATIVE: CASE EVENT DATE: 20221215
